FAERS Safety Report 7127653-1 (Version None)
Quarter: 2010Q4

REPORT INFORMATION
  Report Type: 
  Country: None (occurrence: None)
  Receive Date: 20101130
  Receipt Date: 20101118
  Transmission Date: 20110411
  Serious: Yes (Hospitalization)
  Sender: FDA-Public Use
  Company Number: US-BIOGENIDEC-2010BI040718

PATIENT
  Age: 43 Year
  Sex: Male
  Weight: 90 kg

DRUGS (4)
  1. TYSABRI [Suspect]
     Indication: MULTIPLE SCLEROSIS
     Route: 042
     Dates: start: 20100901
  2. PERCOCET [Concomitant]
     Indication: PAIN
     Route: 048
     Dates: start: 20080101
  3. METHADONE [Concomitant]
     Indication: PAIN
     Route: 048
     Dates: start: 20080101
  4. PHENERGAN [Concomitant]
     Indication: PROPHYLAXIS
     Route: 048
     Dates: start: 20090101

REACTIONS (5)
  - FATIGUE [None]
  - MIGRAINE [None]
  - PAIN [None]
  - PAIN IN EXTREMITY [None]
  - VOMITING [None]
